FAERS Safety Report 19750194 (Version 1)
Quarter: 2021Q3

REPORT INFORMATION
  Report Type: Spontaneous
  Country: DE (occurrence: DE)
  Receive Date: 20210826
  Receipt Date: 20210826
  Transmission Date: 20211014
  Serious: Yes (Other)
  Sender: FDA-Public Use
  Company Number: DE-ASTRAZENECA-2021A689707

PATIENT
  Age: 39 Year
  Sex: Female

DRUGS (1)
  1. LYNPARZA [Suspect]
     Active Substance: OLAPARIB
     Indication: PANCREATIC CARCINOMA
     Dosage: UNKNOWN
     Route: 048

REACTIONS (2)
  - Tumour marker increased [Recovering/Resolving]
  - Malignant neoplasm progression [Unknown]
